FAERS Safety Report 5579096-X (Version None)
Quarter: 2007Q4

REPORT INFORMATION
  Report Type: 
  Country: None (occurrence: None)
  Receive Date: 20071228
  Receipt Date: 20071228
  Transmission Date: 20080405
  Serious: Yes (Other)
  Sender: FDA-Public Use
  Company Number: None

PATIENT
  Age: 38 Year
  Sex: Female
  Weight: 52.1637 kg

DRUGS (2)
  1. AVELOX [Suspect]
     Indication: ARTHROPOD BITE
     Dosage: ONE PILL  PER DAY  PO
     Route: 048
     Dates: start: 20060213, end: 20060215
  2. AVELOX [Suspect]
     Indication: SKIN INFECTION
     Dosage: ONE PILL  PER DAY  PO
     Route: 048
     Dates: start: 20060213, end: 20060215

REACTIONS (6)
  - COORDINATION ABNORMAL [None]
  - DECREASED ACTIVITY [None]
  - DYSKINESIA [None]
  - GAIT DISTURBANCE [None]
  - MEMORY IMPAIRMENT [None]
  - NEUROLOGICAL SYMPTOM [None]
